FAERS Safety Report 8365205-6 (Version None)
Quarter: 2012Q2

REPORT INFORMATION
  Report Type: 
  Country: None (occurrence: None)
  Receive Date: 20120515
  Receipt Date: 20120511
  Transmission Date: 20120825
  Serious: Yes (Hospitalization)
  Sender: FDA-Public Use
  Company Number: ADR-2011-11589

PATIENT
  Age: 4 Year
  Sex: Male

DRUGS (12)
  1. PHENOBARBITAL TAB [Concomitant]
  2. PERIACTIN [Concomitant]
  3. ARTANE [Concomitant]
  4. DANTRIUM [Concomitant]
  5. MUCOSIL-10 [Concomitant]
  6. MUCODYNE [Concomitant]
  7. TRICLORYL [Concomitant]
  8. BACLOFEN [Suspect]
     Indication: MUSCLE SPASTICITY
     Dosage: UNK MCG, DAILY, INTRATH
     Route: 037
  9. ASVERIN [Concomitant]
  10. MYSTAN [Concomitant]
  11. DIAZEPAM [Concomitant]
  12. ONON [Concomitant]

REACTIONS (1)
  - IMPLANT SITE EFFUSION [None]
